FAERS Safety Report 10457100 (Version 1)
Quarter: 2014Q3

REPORT INFORMATION
  Report Type: Spontaneous
  Country: US (occurrence: None)
  Receive Date: 20140915
  Receipt Date: 20140915
  Transmission Date: 20150326
  Serious: No
  Sender: FDA-Public Use
  Company Number: None

PATIENT
  Age: 21 Year
  Sex: Male
  Weight: 56.7 kg

DRUGS (1)
  1. AUGMENTIN [Suspect]
     Active Substance: AMOXICILLIN\CLAVULANATE POTASSIUM
     Indication: INFECTION
     Dosage: 1 PILL  EVERY 12 HOURS TAKEN BY MOUTH
     Route: 048

REACTIONS (3)
  - Pain [None]
  - Musculoskeletal stiffness [None]
  - Discomfort [None]

NARRATIVE: CASE EVENT DATE: 20140914
